FAERS Safety Report 8999493 (Version 1)
Quarter: 2013Q1

REPORT INFORMATION
  Report Type: Report from Study
  Country: AR (occurrence: AR)
  Receive Date: 20130103
  Receipt Date: 20130103
  Transmission Date: 20140127
  Serious: Yes (Hospitalization)
  Sender: FDA-Public Use
  Company Number: AR-ROCHE-1172973

PATIENT
  Age: 42 Year
  Sex: Male

DRUGS (1)
  1. RITUXIMAB [Suspect]
     Indication: THROMBOCYTOPENIA
     Route: 042
     Dates: start: 20121201

REACTIONS (5)
  - Encephalitis [Unknown]
  - Intracranial pressure increased [Recovering/Resolving]
  - Purpura [Not Recovered/Not Resolved]
  - Pyrexia [Recovered/Resolved]
  - Diplopia [Unknown]
